FAERS Safety Report 16843445 (Version 1)
Quarter: 2019Q3

REPORT INFORMATION
  Report Type: Spontaneous
  Country: RO (occurrence: RO)
  Receive Date: 20190924
  Receipt Date: 20190924
  Transmission Date: 20191005
  Serious: Yes (Hospitalization)
  Sender: FDA-Public Use
  Company Number: RO-STRIDES ARCOLAB LIMITED-2019SP008989

PATIENT
  Age: 42 Year
  Sex: Male

DRUGS (15)
  1. TACROLIMUS. [Interacting]
     Active Substance: TACROLIMUS
     Indication: RENAL TRANSPLANT
     Dosage: PROGRESSIVELY ADJUSTED AND LOWERED
     Route: 065
  2. MYCOPHENOLATE MOFETIL. [Suspect]
     Active Substance: MYCOPHENOLATE MOFETIL
     Indication: RENAL TRANSPLANT
     Dosage: UNK, PROGRESSIVELY ADJUSTED AND LOWERED
     Route: 065
  3. TACROLIMUS. [Suspect]
     Active Substance: TACROLIMUS
     Indication: IMMUNOSUPPRESSANT DRUG THERAPY
     Dosage: 10 MG, DAILY
     Route: 065
  4. TACROLIMUS. [Interacting]
     Active Substance: TACROLIMUS
     Dosage: 2 MG, ONCE A WEEK
     Route: 065
  5. PREDNISOLONE. [Suspect]
     Active Substance: PREDNISOLONE
     Dosage: 5 MG DAILY
     Route: 065
  6. DASABUVIR [Interacting]
     Active Substance: DASABUVIR
     Indication: ANTIVIRAL TREATMENT
     Dosage: UNK
     Route: 065
  7. RITONAVIR. [Interacting]
     Active Substance: RITONAVIR
     Indication: ANTIVIRAL TREATMENT
     Dosage: UNK
     Route: 065
  8. MYCOPHENOLATE MOFETIL. [Suspect]
     Active Substance: MYCOPHENOLATE MOFETIL
     Indication: IMMUNOSUPPRESSANT DRUG THERAPY
     Dosage: 1.5 G, DAILY
     Route: 065
  9. PREDNISOLONE. [Suspect]
     Active Substance: PREDNISOLONE
     Indication: IMMUNOSUPPRESSANT DRUG THERAPY
     Dosage: 30 MG, DAILY
     Route: 065
  10. OMBITASVIR [Interacting]
     Active Substance: OMBITASVIR
     Indication: ANTIVIRAL TREATMENT
     Dosage: UNK
     Route: 065
  11. MYCOPHENOLATE MOFETIL. [Suspect]
     Active Substance: MYCOPHENOLATE MOFETIL
     Dosage: 1 MG, DAILY
     Route: 065
  12. PARITAPREVIR [Interacting]
     Active Substance: PARITAPREVIR
     Indication: ANTIVIRAL TREATMENT
     Dosage: UNK
     Route: 065
  13. INTERFERON ALFA NOS [Suspect]
     Active Substance: INTERFERON ALFA-2A OR INTERFERON ALFA-2B
     Indication: CHRONIC HEPATITIS C
     Dosage: UNK
     Route: 065
  14. TACROLIMUS. [Interacting]
     Active Substance: TACROLIMUS
     Dosage: 2 MG DAILY
     Route: 065
  15. PREDNISOLONE. [Suspect]
     Active Substance: PREDNISOLONE
     Indication: RENAL TRANSPLANT
     Dosage: UNK, PROGRESSIVELY ADJUSTED AND LOWERED
     Route: 065

REACTIONS (18)
  - Hyperglycaemia [Recovered/Resolved]
  - Abdominal pain [Unknown]
  - Overdose [Unknown]
  - Drug interaction [Unknown]
  - Condition aggravated [Unknown]
  - Confusional state [Unknown]
  - Vision blurred [Unknown]
  - Headache [Unknown]
  - Thirst [Unknown]
  - Sinus tachycardia [Unknown]
  - Disturbance in attention [Unknown]
  - Anxiety [Unknown]
  - Infection reactivation [Recovered/Resolved]
  - Fatigue [Unknown]
  - Dry skin [Unknown]
  - Nausea [Unknown]
  - Product administration error [Unknown]
  - Diabetes mellitus [Unknown]
